FAERS Safety Report 6721742-9 (Version None)
Quarter: 2010Q2

REPORT INFORMATION
  Report Type: 
  Country: None (occurrence: None)
  Receive Date: 20100512
  Receipt Date: 20100512
  Transmission Date: 20101027
  Serious: Yes (Hospitalization)
  Sender: FDA-Public Use
  Company Number: None

PATIENT

DRUGS (2)
  1. CHILDRENS TYLENOL ORAL SUSPENSION TYLENOL [Suspect]
     Indication: INFECTION
     Dosage: 1 TSP EVERY 4 HRS ORAL
     Route: 048
     Dates: start: 20100423
  2. MOTRIN [Suspect]
     Indication: BACTERIAL TEST POSITIVE
     Dosage: 1/2 TSP EVERY 4 HRS ORAL
     Route: 048

REACTIONS (3)
  - DYSPNOEA [None]
  - INFECTION [None]
  - OXYGEN SATURATION DECREASED [None]
